FAERS Safety Report 5732146-X (Version None)
Quarter: 2008Q2

REPORT INFORMATION
  Report Type: 
  Country: None (occurrence: None)
  Receive Date: 20080508
  Receipt Date: 20080429
  Transmission Date: 20081010
  Serious: Yes (Other)
  Sender: FDA-Public Use
  Company Number: US-PFIZER INC-2008037862

PATIENT
  Sex: Female
  Weight: 49.9 kg

DRUGS (3)
  1. XALATAN [Suspect]
     Indication: INTRAOCULAR PRESSURE INCREASED
     Dates: start: 20071001, end: 20080401
  2. XALATAN [Suspect]
     Indication: PROPHYLAXIS
  3. ACTONEL [Concomitant]
     Indication: OSTEOPOROSIS

REACTIONS (5)
  - EYE DISORDER [None]
  - EYE IRRITATION [None]
  - EYELID OEDEMA [None]
  - PRURITUS [None]
  - SCAB [None]
